FAERS Safety Report 5379748-0 (Version None)
Quarter: 2007Q3

REPORT INFORMATION
  Report Type: 
  Country: None (occurrence: None)
  Receive Date: 20070706
  Receipt Date: 20070628
  Transmission Date: 20080115
  Serious: Yes (Hospitalization, Other)
  Sender: FDA-Public Use
  Company Number: PHEH2007US09430

PATIENT
  Age: 58 Year
  Sex: Male

DRUGS (6)
  1. LAMISIL [Suspect]
     Indication: FUNGAL INFECTION
     Dosage: 250 MG, BID
     Route: 048
     Dates: start: 20070601, end: 20070603
  2. BENICAR [Concomitant]
     Indication: BLOOD CHOLESTEROL
  3. NORVASC [Concomitant]
     Indication: HYPERTENSION
  4. PROBENECID [Concomitant]
  5. ZETIA [Concomitant]
     Indication: BLOOD CHOLESTEROL
  6. PREVACID [Concomitant]
     Indication: GASTROOESOPHAGEAL REFLUX DISEASE

REACTIONS (8)
  - ABDOMINAL PAIN [None]
  - BILE DUCT OBSTRUCTION [None]
  - BILIARY DRAINAGE [None]
  - CONDITION AGGRAVATED [None]
  - INTESTINAL FUNCTIONAL DISORDER [None]
  - JAUNDICE [None]
  - LIVER DISORDER [None]
  - PANCREATIC DISORDER [None]
